FAERS Safety Report 4777828-1 (Version None)
Quarter: 2005Q3

REPORT INFORMATION
  Report Type: 
  Country: None (occurrence: None)
  Receive Date: 20050915
  Receipt Date: 20050826
  Transmission Date: 20060218
  Serious: Yes (Hospitalization)
  Sender: FDA-Public Use
  Company Number: DE_050816661

PATIENT
  Age: 38 Year
  Sex: Female

DRUGS (5)
  1. GEMZAR [Suspect]
     Indication: BREAST CANCER
     Dosage: 1000 MG/M2
     Dates: start: 20050601, end: 20050728
  2. TAXOTERE [Concomitant]
  3. DEPOCYTE (CYTARABINE) [Concomitant]
  4. AROMASIN [Concomitant]
  5. PARACETAMOL [Concomitant]

REACTIONS (6)
  - ALVEOLITIS [None]
  - COMPUTERISED TOMOGRAM ABNORMAL [None]
  - DRUG TOXICITY [None]
  - DYSPNOEA AT REST [None]
  - DYSPNOEA EXERTIONAL [None]
  - MALAISE [None]
